FAERS Safety Report 9029805 (Version 1)
Quarter: 2013Q1

REPORT INFORMATION
  Report Type: Spontaneous
  Country: US (occurrence: US)
  Receive Date: 20130124
  Receipt Date: 20130124
  Transmission Date: 20140127
  Serious: Yes (Other)
  Sender: FDA-Public Use
  Company Number: US-JNJFOC-20130111053

PATIENT
  Sex: Female
  Weight: 83.92 kg

DRUGS (4)
  1. TOPAMAX [Suspect]
     Indication: TRIGEMINAL NEURALGIA
     Route: 048
  2. TOPAMAX [Suspect]
     Indication: TRIGEMINAL NEURALGIA
     Dosage: ONE TABLET IN THE MORNING; TWO TABLETS AT NIGHT
     Route: 048
     Dates: end: 20130114
  3. TEGRETOL [Concomitant]
     Indication: TRIGEMINAL NEURALGIA
     Route: 048
  4. LYRICA [Concomitant]
     Indication: PAIN
     Route: 048

REACTIONS (4)
  - Haemorrhage [Recovered/Resolved]
  - Medication residue present [Not Recovered/Not Resolved]
  - Drug ineffective [Not Recovered/Not Resolved]
  - Product quality issue [Not Recovered/Not Resolved]
